FAERS Safety Report 4777186-2 (Version None)
Quarter: 2005Q3

REPORT INFORMATION
  Report Type: 
  Country: None (occurrence: None)
  Receive Date: 20050923
  Receipt Date: 20050718
  Transmission Date: 20060218
  Serious: Yes (Hospitalization)
  Sender: FDA-Public Use
  Company Number: US-MERCK-0507USA03058

PATIENT
  Age: 57 Year
  Sex: Male
  Weight: 111 kg

DRUGS (4)
  1. VIOXX [Suspect]
     Indication: NECK INJURY
     Route: 048
     Dates: start: 20030401, end: 20030813
  2. LOPRESSOR [Concomitant]
     Route: 065
  3. ZOCOR [Concomitant]
     Route: 065
  4. ASPIRIN [Concomitant]
     Route: 065

REACTIONS (1)
  - MYOCARDIAL INFARCTION [None]
